FAERS Safety Report 5648851-X (Version None)
Quarter: 2008Q1

REPORT INFORMATION
  Report Type: 
  Country: None (occurrence: None)
  Receive Date: 20080303
  Receipt Date: 20080303
  Transmission Date: 20080703
  Serious: No
  Sender: FDA-Public Use
  Company Number: None

PATIENT
  Age: 47 Year
  Sex: Male

DRUGS (1)
  1. OLANZAPINE [Suspect]
     Indication: DEPRESSION
     Dosage: MG HS PO
     Route: 048
     Dates: start: 20070830, end: 20071101

REACTIONS (1)
  - EYE SWELLING [None]
